FAERS Safety Report 5363149-5 (Version None)
Quarter: 2007Q2

REPORT INFORMATION
  Report Type: 
  Country: None (occurrence: None)
  Receive Date: 20070620
  Receipt Date: 20070611
  Transmission Date: 20071010
  Serious: Yes (Other)
  Sender: FDA-Public Use
  Company Number: PHEH2007US06156

PATIENT
  Age: 81 Year
  Sex: Female

DRUGS (2)
  1. ZELNORM [Suspect]
     Indication: IRRITABLE BOWEL SYNDROME
     Dosage: 6 MG, BID
     Route: 048
     Dates: start: 20070102
  2. ZELNORM [Suspect]
     Dosage: 1/2 6 MG EVERY TWO DAYS
     Route: 048

REACTIONS (9)
  - ABDOMINAL PAIN UPPER [None]
  - ASTHENIA [None]
  - CONSTIPATION [None]
  - DIARRHOEA [None]
  - DIZZINESS [None]
  - GAIT DISTURBANCE [None]
  - HEADACHE [None]
  - NAUSEA [None]
  - PAIN [None]
